FAERS Safety Report 20037527 (Version 2)
Quarter: 2021Q4

REPORT INFORMATION
  Report Type: Other
  Country: US (occurrence: None)
  Receive Date: 20211105
  Receipt Date: 20211121
  Transmission Date: 20220303
  Serious: Yes (Other)
  Sender: FDA-Public Use
  Company Number: US-ROCHE-2832009

PATIENT
  Sex: Male

DRUGS (1)
  1. CELLCEPT [Suspect]
     Active Substance: MYCOPHENOLATE MOFETIL\MYCOPHENOLATE MOFETIL HYDROCHLORIDE
     Indication: Heart transplant
     Dosage: 1 TAB BID
     Route: 065

REACTIONS (2)
  - Skin cancer [Unknown]
  - Off label use [Unknown]
